FAERS Safety Report 4807767-9 (Version None)
Quarter: 2005Q4

REPORT INFORMATION
  Report Type: 
  Country: None (occurrence: None)
  Receive Date: 20051021
  Receipt Date: 20051010
  Transmission Date: 20060501
  Serious: Yes (Other)
  Sender: FDA-Public Use
  Company Number: 218518

PATIENT
  Sex: 0

DRUGS (1)
  1. XOLAIR [Suspect]

REACTIONS (1)
  - CROHN'S DISEASE [None]
